FAERS Safety Report 18297222 (Version 5)
Quarter: 2021Q2

REPORT INFORMATION
  Report Type: Spontaneous
  Country: DE (occurrence: DE)
  Receive Date: 20200923
  Receipt Date: 20210427
  Transmission Date: 20210717
  Serious: Yes (Other)
  Sender: FDA-Public Use
  Company Number: DE-AUROBINDO-AUR-APL-2020-048671

PATIENT
  Age: 50 Year
  Sex: Female

DRUGS (2)
  1. CLOPIDOGREL [Suspect]
     Active Substance: CLOPIDOGREL BISULFATE
     Indication: PRODUCT USED FOR UNKNOWN INDICATION
     Dosage: UNK
     Route: 065
     Dates: start: 2019
  2. ZELDOX [Interacting]
     Active Substance: ZIPRASIDONE
     Indication: PRODUCT USED FOR UNKNOWN INDICATION
     Dosage: 160 MILLIGRAM, ONCE A DAY
     Route: 065
     Dates: start: 2011, end: 20201115

REACTIONS (15)
  - Hypertensive crisis [Recovered/Resolved]
  - Cardiac disorder [Recovered/Resolved]
  - Weight decreased [Not Recovered/Not Resolved]
  - Dyspnoea [Not Recovered/Not Resolved]
  - Blood creatine phosphokinase abnormal [Recovered/Resolved]
  - Suicide attempt [Unknown]
  - Drug interaction [Unknown]
  - Blood pressure abnormal [Recovered/Resolved]
  - Incontinence [Recovered/Resolved]
  - Cardiac failure [Recovered/Resolved]
  - Left ventricular failure [Recovered/Resolved]
  - Blood lactate dehydrogenase increased [Recovered/Resolved]
  - Electrocardiogram QT prolonged [Recovered/Resolved]
  - Muscular weakness [Recovered/Resolved]
  - Angina pectoris [Not Recovered/Not Resolved]

NARRATIVE: CASE EVENT DATE: 2019
